FAERS Safety Report 13878412 (Version 1)
Quarter: 2017Q3

REPORT INFORMATION
  Report Type: Spontaneous
  Country: US (occurrence: US)
  Receive Date: 20170817
  Receipt Date: 20170817
  Transmission Date: 20171127
  Serious: No
  Sender: FDA-Public Use
  Company Number: US-ROCHE-1958986

PATIENT
  Age: 63 Year
  Sex: Male
  Weight: 80 kg

DRUGS (12)
  1. OMEPRAZOLE. [Concomitant]
     Active Substance: OMEPRAZOLE
     Route: 065
  2. RIBAVIRIN. [Suspect]
     Active Substance: RIBAVIRIN
     Indication: CHRONIC HEPATITIS C
     Route: 065
     Dates: start: 2012
  3. SOFOSBUVIR [Interacting]
     Active Substance: SOFOSBUVIR
     Indication: CHRONIC HEPATITIS C
     Route: 048
     Dates: start: 201409
  4. WARFARIN [Interacting]
     Active Substance: WARFARIN
     Route: 065
  5. VENLAFAXINE [Concomitant]
     Active Substance: VENLAFAXINE HYDROCHLORIDE
     Indication: PAIN
     Route: 065
  6. VENLAFAXINE [Concomitant]
     Active Substance: VENLAFAXINE HYDROCHLORIDE
     Indication: POST-TRAUMATIC STRESS DISORDER
     Route: 065
  7. RIBAVIRIN. [Interacting]
     Active Substance: RIBAVIRIN
     Route: 048
     Dates: start: 201409
  8. WARFARIN [Interacting]
     Active Substance: WARFARIN
     Route: 065
  9. TURMERIC [Concomitant]
     Active Substance: HERBALS\TURMERIC
     Indication: HEADACHE
     Dosage: 1 CAPSULE 3 TIMES DAILY
     Route: 065
  10. RIBAVIRIN. [Interacting]
     Active Substance: RIBAVIRIN
     Dosage: 600 MG IN THE MORNING AND 400 MG IN THE EVENING
     Route: 048
  11. WARFARIN [Interacting]
     Active Substance: WARFARIN
     Indication: ANTICOAGULANT THERAPY
     Route: 065
  12. WARFARIN [Interacting]
     Active Substance: WARFARIN
     Route: 065

REACTIONS (3)
  - Anaemia [Unknown]
  - Drug interaction [Unknown]
  - International normalised ratio decreased [Unknown]
